FAERS Safety Report 8028804-7 (Version None)
Quarter: 2012Q1

REPORT INFORMATION
  Report Type: 
  Country: None (occurrence: None)
  Receive Date: 20120106
  Receipt Date: 20111230
  Transmission Date: 20120608
  Serious: Yes (Other)
  Sender: FDA-Public Use
  Company Number: CA-GLAXOSMITHKLINE-A0960247A

PATIENT
  Age: 40 Year
  Sex: Female
  Weight: 90.9 kg

DRUGS (2)
  1. LEVOTHYROXINE SODIUM [Concomitant]
     Indication: HYPOTHYROIDISM
     Dosage: .15MG AT NIGHT
  2. NICODERM [Suspect]
     Indication: SMOKING CESSATION THERAPY
     Dosage: 21MG PER DAY
     Route: 062
     Dates: start: 20111205, end: 20111228

REACTIONS (4)
  - INFLUENZA LIKE ILLNESS [None]
  - GASTROENTERITIS VIRAL [None]
  - PYREXIA [None]
  - MALAISE [None]
